FAERS Safety Report 5945138-2 (Version None)
Quarter: 2008Q4

REPORT INFORMATION
  Report Type: 
  Country: None (occurrence: None)
  Receive Date: 20081107
  Receipt Date: 20081106
  Transmission Date: 20090506
  Serious: Yes (Other)
  Sender: FDA-Public Use
  Company Number: A0755203A

PATIENT
  Age: 70 Year
  Sex: Female

DRUGS (2)
  1. AVANDIA [Suspect]
     Dosage: 4MG PER DAY
     Route: 048
  2. CADUET [Concomitant]

REACTIONS (4)
  - CHEST PAIN [None]
  - MIDDLE INSOMNIA [None]
  - NEOPLASM SKIN [None]
  - SKIN BURNING SENSATION [None]
